FAERS Safety Report 19905444 (Version 1)
Quarter: 2021Q3

REPORT INFORMATION
  Report Type: Spontaneous
  Country: US (occurrence: US)
  Receive Date: 20210930
  Receipt Date: 20210930
  Transmission Date: 20211014
  Serious: No
  Sender: FDA-Public Use
  Company Number: None

PATIENT
  Age: 73 Year
  Sex: Female
  Weight: 68.95 kg

DRUGS (6)
  1. AMLODIPINE BESYLATE. [Concomitant]
     Active Substance: AMLODIPINE BESYLATE
  2. PREGABALIN. [Suspect]
     Active Substance: PREGABALIN
     Indication: PHANTOM LIMB SYNDROME
     Dosage: ?          QUANTITY:1 DF DOSAGE FORM;?
     Route: 048
     Dates: start: 20190602
  3. ROSIVASTATIN 10 MG [Concomitant]
  4. CORICIDIN [Concomitant]
  5. CLOPIDOGREL [Concomitant]
     Active Substance: CLOPIDOGREL BISULFATE
  6. ASPIRIN 81 MG [Concomitant]
     Active Substance: ASPIRIN

REACTIONS (4)
  - Road traffic accident [None]
  - Drug ineffective [None]
  - Leg amputation [None]
  - Limb injury [None]

NARRATIVE: CASE EVENT DATE: 20190602
